FAERS Safety Report 6067232-0 (Version None)
Quarter: 2009Q1

REPORT INFORMATION
  Report Type: 
  Country: None (occurrence: None)
  Receive Date: 20090205
  Receipt Date: 20090204
  Transmission Date: 20090719
  Serious: Yes (Other)
  Sender: FDA-Public Use
  Company Number: PHEH2007US03266

PATIENT
  Sex: Male

DRUGS (4)
  1. AREDIA [Suspect]
  2. ZOMETA [Suspect]
  3. PROTONIX [Concomitant]
  4. DIFLUCAN [Concomitant]

REACTIONS (7)
  - ANXIETY [None]
  - DECREASED INTEREST [None]
  - GENERAL PHYSICAL HEALTH DETERIORATION [None]
  - OSTEONECROSIS [None]
  - PAIN [None]
  - TOOTH EXTRACTION [None]
  - TOOTH FRACTURE [None]
